FAERS Safety Report 5144437-4 (Version None)
Quarter: 2006Q4

REPORT INFORMATION
  Report Type: 
  Country: None (occurrence: None)
  Receive Date: 20061031
  Receipt Date: 20061016
  Transmission Date: 20070319
  Serious: Yes (Other)
  Sender: FDA-Public Use
  Company Number: 2006BL006121

PATIENT
  Age: 73 Year
  Sex: Female

DRUGS (2)
  1. FLOXAL AUGENTROPFEN (OFLOXACIN) [Suspect]
     Indication: KERATOPATHY
     Dosage: 3 TIMES A DAY; OPHTHALMIC
     Route: 047
  2. HYLO-COMOD (NO PREF. NAME) [Suspect]
     Indication: KERATOPATHY
     Dosage: 30 TIMES A DAY; OPHTHALMIC
     Route: 047

REACTIONS (4)
  - CORNEAL DEPOSITS [None]
  - CORNEAL EPITHELIUM DISORDER [None]
  - KERATOPATHY [None]
  - ULCERATIVE KERATITIS [None]
